FAERS Safety Report 7621443-9 (Version None)
Quarter: 2011Q3

REPORT INFORMATION
  Report Type: 
  Country: None (occurrence: None)
  Receive Date: 20110719
  Receipt Date: 20110707
  Transmission Date: 20111222
  Serious: Yes (Death)
  Sender: FDA-Public Use
  Company Number: US-PFIZER INC-2010001288

PATIENT
  Age: 47 Year
  Sex: Female

DRUGS (7)
  1. ALPRAZOLAM [Suspect]
     Route: 048
  2. BACLOFEN [Suspect]
     Route: 048
  3. BUTALBITAL AND ACETAMINOPHEN [Suspect]
     Route: 048
  4. HYDROXYZINE [Suspect]
     Route: 048
  5. PREGABALIN [Suspect]
     Route: 048
  6. LEVOTHYROXINE SODIUM [Suspect]
     Route: 048
  7. MIRTAZAPINE [Suspect]
     Route: 048

REACTIONS (1)
  - COMPLETED SUICIDE [None]
